FAERS Safety Report 18481560 (Version 1)
Quarter: 2020Q4

REPORT INFORMATION
  Report Type: Spontaneous
  Country: DE (occurrence: DE)
  Receive Date: 20201109
  Receipt Date: 20201109
  Transmission Date: 20210114
  Serious: Yes (Other)
  Sender: FDA-Public Use
  Company Number: DE-ANIPHARMA-2020-DE-000235

PATIENT
  Age: 62 Year
  Sex: Male

DRUGS (1)
  1. LITHIUM CARBONATE (NON-SPECIFIC) [Suspect]
     Active Substance: LITHIUM
     Indication: BIPOLAR DISORDER

REACTIONS (2)
  - Psoriasis [Unknown]
  - Enthesopathy [Unknown]
